FAERS Safety Report 20592356 (Version 1)
Quarter: 2022Q1

REPORT INFORMATION
  Report Type: Spontaneous
  Country: US (occurrence: None)
  Receive Date: 20220314
  Receipt Date: 20220314
  Transmission Date: 20220424
  Serious: No
  Sender: FDA-Public Use
  Company Number: US-ROCHE-2838589

PATIENT
  Age: 74 Year
  Sex: Female

DRUGS (4)
  1. XOLAIR [Suspect]
     Active Substance: OMALIZUMAB
     Indication: Product used for unknown indication
     Route: 065
     Dates: start: 20201005
  2. OXYCODONE [Concomitant]
     Active Substance: OXYCODONE
  3. ASPIRIN [Concomitant]
     Active Substance: ASPIRIN
  4. METHOCARBAMOL [Concomitant]
     Active Substance: METHOCARBAMOL

REACTIONS (5)
  - Fall [Unknown]
  - Wrist fracture [Unknown]
  - Upper limb fracture [Unknown]
  - Fracture [Unknown]
  - Ankle fracture [Unknown]

NARRATIVE: CASE EVENT DATE: 20201108
